FAERS Safety Report 23889756 (Version 1)
Quarter: 2024Q2

REPORT INFORMATION
  Report Type: Spontaneous
  Country: US (occurrence: None)
  Receive Date: 20240523
  Receipt Date: 20240523
  Transmission Date: 20240715
  Serious: Yes (Disabling, Other)
  Sender: FDA-Public Use
  Company Number: None

PATIENT
  Age: 85 Year
  Sex: Female
  Weight: 66.22 kg

DRUGS (5)
  1. GABAPENTIN [Suspect]
     Active Substance: GABAPENTIN
     Indication: Pain
     Dosage: FREQUENCY : 3 TIMES A DAY;?
     Route: 048
     Dates: start: 20231208, end: 20240125
  2. TYLENOL [Concomitant]
     Active Substance: ACETAMINOPHEN
  3. DICLOFENAC 1A PHARMA [Concomitant]
  4. LEVOTHYROXINE [Concomitant]
     Active Substance: LEVOTHYROXINE\LEVOTHYROXINE SODIUM
  5. FAMOTIDINE [Concomitant]
     Active Substance: FAMOTIDINE

REACTIONS (13)
  - Sciatica [None]
  - Lumbar radiculopathy [None]
  - Tongue erythema [None]
  - Glossitis [None]
  - Ageusia [None]
  - Feeling cold [None]
  - Dyspepsia [None]
  - Weight decreased [None]
  - Carbon dioxide decreased [None]
  - Blood glucose increased [None]
  - Neck mass [None]
  - Induration [None]
  - Gait inability [None]

NARRATIVE: CASE EVENT DATE: 20231208
